FAERS Safety Report 8433432-5 (Version None)
Quarter: 2012Q2

REPORT INFORMATION
  Report Type: 
  Country: None (occurrence: None)
  Receive Date: 20120613
  Receipt Date: 20120604
  Transmission Date: 20120825
  Serious: Yes (Other)
  Sender: FDA-Public Use
  Company Number: BR-JNJFOC-20120603435

PATIENT
  Age: 55 Year
  Sex: Female
  Weight: 75 kg

DRUGS (3)
  1. NIMESULIDE [Concomitant]
     Indication: OSTEOARTHRITIS
     Route: 065
     Dates: end: 20120602
  2. ACETAMINOPHEN W/ CODEINE [Suspect]
     Indication: ARTHRALGIA
     Route: 048
     Dates: start: 20120527, end: 20120602
  3. DIPYRONE TAB [Concomitant]
     Indication: OSTEOARTHRITIS
     Route: 065
     Dates: end: 20120602

REACTIONS (4)
  - CONFUSIONAL STATE [None]
  - INADEQUATE DIET [None]
  - PRURITUS [None]
  - ERYTHEMA [None]
